FAERS Safety Report 10102703 (Version 1)
Quarter: 2014Q2

REPORT INFORMATION
  Report Type: Spontaneous
  Country: GB (occurrence: GB)
  Receive Date: 20140424
  Receipt Date: 20140424
  Transmission Date: 20141212
  Serious: Yes (Other)
  Sender: FDA-Public Use
  Company Number: GB-WATSON-2014-07940

PATIENT
  Sex: Female

DRUGS (1)
  1. AMLODIPINE (UNKNOWN) [Suspect]
     Indication: HYPERTENSION
     Dosage: UNK
     Route: 065
     Dates: end: 201403

REACTIONS (3)
  - Joint swelling [Recovered/Resolved]
  - Muscle spasms [Recovered/Resolved]
  - Peripheral swelling [Recovered/Resolved]
